FAERS Safety Report 9513673 (Version 1)
Quarter: 2013Q1

REPORT INFORMATION
  Report Type: Spontaneous
  Country: US (occurrence: None)
  Receive Date: 20130305
  Receipt Date: 20130305
  Transmission Date: 20140127
  Serious: Yes (Other)
  Sender: FDA-Public Use
  Company Number: 163-21880-12102098

PATIENT
  Age: 17 Year
  Sex: Male
  Weight: 89.8 kg

DRUGS (2)
  1. REVLIMID (LENALIDOMIDE) (CAPSULES) [Suspect]
     Indication: GLIOMA
     Dosage: 1 IN 1 D
     Route: 048
     Dates: start: 2008
  2. DECONGESTANT (UNKNOWN) [Concomitant]

REACTIONS (4)
  - Pancytopenia [None]
  - Glioma [None]
  - Disease progression [None]
  - Fatigue [None]
